FAERS Safety Report 14999701 (Version 1)
Quarter: 2018Q2

REPORT INFORMATION
  Report Type: Spontaneous
  Country: DE (occurrence: DE)
  Receive Date: 20180612
  Receipt Date: 20180612
  Transmission Date: 20180711
  Serious: Yes (Hospitalization)
  Sender: FDA-Public Use
  Company Number: DE-TEVA-2018-DE-904315

PATIENT
  Age: 68 Year
  Sex: Male

DRUGS (5)
  1. ERYFER [Concomitant]
     Dosage: 100 MILLIGRAM DAILY; , 1-0-0-0
     Route: 065
  2. ALLOPURINOL. [Concomitant]
     Active Substance: ALLOPURINOL
     Dosage: 100 MILLIGRAM DAILY; 100 MG, 1-0-0-0
     Route: 065
  3. HYDROCHLOROTHIAZID W/LOSARTAN [Concomitant]
     Dosage: 100|25 MG, 1-0-0-0
     Route: 065
  4. IBUPROFEN. [Suspect]
     Active Substance: IBUPROFEN
     Dosage: NK
     Route: 065
  5. PARACETAMOL [Concomitant]
     Active Substance: ACETAMINOPHEN
     Dosage: NK
     Route: 065

REACTIONS (3)
  - Fall [Unknown]
  - Anaemia [Unknown]
  - Haematemesis [Unknown]
